FAERS Safety Report 23402715 (Version 1)
Quarter: 2024Q1

REPORT INFORMATION
  Report Type: Spontaneous
  Country: CN (occurrence: CN)
  Receive Date: 20240115
  Receipt Date: 20240115
  Transmission Date: 20240410
  Serious: Yes (Other)
  Sender: FDA-Public Use
  Company Number: CN-PFIZER INC-202400007331

PATIENT
  Age: 8 Decade

DRUGS (1)
  1. VFEND [Suspect]
     Active Substance: VORICONAZOLE
     Indication: Aspergillus infection

REACTIONS (2)
  - Neurotoxicity [Unknown]
  - Epilepsy [Unknown]
